FAERS Safety Report 10847074 (Version 2)
Quarter: 2015Q3

REPORT INFORMATION
  Report Type: Report from Study
  Country: BR (occurrence: BR)
  Receive Date: 20150220
  Receipt Date: 20150915
  Transmission Date: 20151125
  Serious: Yes (Other)
  Sender: FDA-Public Use
  Company Number: BR-BRISTOL-MYERS SQUIBB COMPANY-BMS-2015-008299

PATIENT
  Age: 58 Year
  Sex: Female

DRUGS (1)
  1. ABATACEPT [Suspect]
     Active Substance: ABATACEPT
     Indication: RHEUMATOID ARTHRITIS
     Dosage: UNK, Q4WK
     Route: 065

REACTIONS (5)
  - Vision blurred [Unknown]
  - Diabetes mellitus [Recovering/Resolving]
  - Hyperhidrosis [Unknown]
  - Malaise [Unknown]
  - Labyrinthitis [Recovering/Resolving]

NARRATIVE: CASE EVENT DATE: 201412
